FAERS Safety Report 12250408 (Version 2)
Quarter: 2016Q2

REPORT INFORMATION
  Report Type: Spontaneous
  Country: US (occurrence: US)
  Receive Date: 20160408
  Receipt Date: 20160506
  Transmission Date: 20160815
  Serious: No
  Sender: FDA-Public Use
  Company Number: ALCN2016US002383

PATIENT
  Sex: Female

DRUGS (3)
  1. SYSTANE PF [Suspect]
     Active Substance: POLYETHYLENE GLYCOL 400\PROPYLENE GLYCOL
     Indication: DRY EYE
     Dosage: 1 GTT, QD
     Route: 047
     Dates: start: 201509, end: 20160330
  2. SYSTANE ULTRA [Concomitant]
     Active Substance: POLYETHYLENE GLYCOL 400\PROPYLENE GLYCOL
     Indication: DRY EYE
     Dosage: 1 GTT, PRN
     Route: 047
  3. TEARS NATURALE FREE//DEXTRAN [Concomitant]
     Indication: DRY EYE
     Dosage: 1 GTT, PRN
     Route: 047
     Dates: start: 2012

REACTIONS (3)
  - Foreign body sensation in eyes [Recovered/Resolved]
  - Eye irritation [Recovered/Resolved]
  - Drug ineffective [Recovered/Resolved]

NARRATIVE: CASE EVENT DATE: 201509
